FAERS Safety Report 20697857 (Version 2)
Quarter: 2022Q2

REPORT INFORMATION
  Report Type: Spontaneous
  Country: US (occurrence: US)
  Receive Date: 20220412
  Receipt Date: 20220610
  Transmission Date: 20220721
  Serious: No
  Sender: FDA-Public Use
  Company Number: US-ALXN-A202204415

PATIENT
  Sex: Female

DRUGS (4)
  1. SOLIRIS [Suspect]
     Active Substance: ECULIZUMAB
     Indication: Neuromyelitis optica spectrum disorder
     Dosage: 120 ML, Q2W
     Route: 042
     Dates: start: 20220315
  2. SOLIRIS [Suspect]
     Active Substance: ECULIZUMAB
     Indication: Dysuria
  3. SOLIRIS [Suspect]
     Active Substance: ECULIZUMAB
     Indication: White blood cell count increased
  4. SOLIRIS [Suspect]
     Active Substance: ECULIZUMAB
     Indication: Optic neuritis

REACTIONS (2)
  - Hot flush [Recovered/Resolved]
  - Urinary tract infection [Not Recovered/Not Resolved]
